FAERS Safety Report 25482679 (Version 4)
Quarter: 2025Q3

REPORT INFORMATION
  Report Type: Report from Study
  Country: CA (occurrence: CA)
  Receive Date: 20250626
  Receipt Date: 20250825
  Transmission Date: 20251020
  Serious: Yes (Hospitalization)
  Sender: CSL BEHRING
  Company Number: CA-BEH-2025209544

PATIENT
  Age: 82 Year
  Sex: Female
  Weight: 68 kg

DRUGS (20)
  1. HIZENTRA [Suspect]
     Active Substance: HUMAN IMMUNOGLOBULIN G
     Indication: Secondary immunodeficiency
     Dosage: 16 G, QOW
     Route: 058
     Dates: start: 20241114
  2. HIZENTRA [Suspect]
     Active Substance: HUMAN IMMUNOGLOBULIN G
     Dosage: 16 G, QOW
     Route: 058
  3. HIZENTRA [Suspect]
     Active Substance: HUMAN IMMUNOGLOBULIN G
     Dosage: 8 G, QW
     Route: 058
  4. HIZENTRA [Suspect]
     Active Substance: HUMAN IMMUNOGLOBULIN G
     Dosage: 8 G, QW
     Route: 065
  5. HIZENTRA [Suspect]
     Active Substance: HUMAN IMMUNOGLOBULIN G
     Dosage: UNK UNK, QW
     Route: 065
  6. HIZENTRA [Suspect]
     Active Substance: HUMAN IMMUNOGLOBULIN G
     Route: 065
     Dates: start: 20250805
  7. HIZENTRA [Suspect]
     Active Substance: HUMAN IMMUNOGLOBULIN G
     Dosage: 16 G, QOW
     Route: 058
     Dates: start: 20241114
  8. HIZENTRA [Suspect]
     Active Substance: HUMAN IMMUNOGLOBULIN G
     Route: 065
     Dates: start: 20250818
  9. ACETAMINOPHEN [Concomitant]
     Active Substance: ACETAMINOPHEN
     Indication: Product used for unknown indication
     Route: 065
  10. DEXILANT [Concomitant]
     Active Substance: DEXLANSOPRAZOLE
     Indication: Product used for unknown indication
     Route: 065
  11. DOMPERIDONE [Concomitant]
     Active Substance: DOMPERIDONE
  12. DULOXETINE [Concomitant]
     Active Substance: DULOXETINE
  13. FERROUS SULFATE [Concomitant]
     Active Substance: FERROUS SULFATE
  14. VALACYCLOVIR [Concomitant]
     Active Substance: VALACYCLOVIR HYDROCHLORIDE
  15. CALCIUM\VITAMIN D [Concomitant]
     Active Substance: CALCIUM\VITAMIN D
  16. VITAMIN B12 [Concomitant]
     Active Substance: CYANOCOBALAMIN
  17. BISOPROLOL [Concomitant]
     Active Substance: BISOPROLOL
  18. SULFATRIM [Concomitant]
     Active Substance: SULFAMETHOXAZOLE\TRIMETHOPRIM
  19. SYNTHROID [Concomitant]
     Active Substance: LEVOTHYROXINE SODIUM
  20. ASPIRIN [Concomitant]
     Active Substance: ASPIRIN
     Indication: Product used for unknown indication
     Route: 065

REACTIONS (24)
  - Confusional state [Unknown]
  - Diarrhoea [Unknown]
  - Dizziness [Unknown]
  - Headache [Unknown]
  - Hospitalisation [Unknown]
  - Infusion site erythema [Unknown]
  - Infusion site erythema [Unknown]
  - Infusion site oedema [Unknown]
  - Infusion site oedema [Unknown]
  - Infusion site oedema [Unknown]
  - Injection site mass [Unknown]
  - Injection site swelling [Unknown]
  - Magnesium deficiency [Unknown]
  - Memory impairment [Unknown]
  - Memory impairment [Unknown]
  - Memory impairment [Unknown]
  - Memory impairment [Unknown]
  - Otolithiasis [Unknown]
  - Product dose omission issue [Unknown]
  - Flank pain [Unknown]
  - Hyperaesthesia [Unknown]
  - Infusion site oedema [Unknown]
  - Pruritus [Recovered/Resolved]
  - Infusion site oedema [Unknown]

NARRATIVE: CASE EVENT DATE: 20250723
